FAERS Safety Report 6935233 (Version 4)
Quarter: 2023Q2

REPORT INFORMATION
  Report Type: Spontaneous
  Country: IT (occurrence: IT)
  Receive Date: 20090227
  Receipt Date: 20230412
  Transmission Date: 20230722
  Serious: Yes (Other)
  Sender: FDA-Public Use
  Company Number: GXKR2009IT02018

PATIENT
  Age: 23 Year
  Sex: Male

DRUGS (8)
  1. MESALAMINE [Suspect]
     Active Substance: MESALAMINE
     Indication: Proctitis ulcerative
     Dosage: UNK
     Route: 054
     Dates: start: 200602, end: 200604
  2. MESALAMINE [Suspect]
     Active Substance: MESALAMINE
     Indication: Colitis ulcerative
     Dosage: 2.4 GRAMS DAILY
     Route: 048
     Dates: start: 200603, end: 200604
  3. MESALAMINE [Suspect]
     Active Substance: MESALAMINE
     Indication: Colitis
     Dosage: 2.4 GRAMS DAILY
     Route: 048
     Dates: start: 200605, end: 200605
  4. ASPIRIN [Suspect]
     Active Substance: ASPIRIN
     Indication: Influenza
     Dosage: 300 MG
     Route: 065
     Dates: start: 200612
  5. MESALAMINE [Concomitant]
     Active Substance: MESALAMINE
     Indication: Colitis ulcerative
     Dosage: 2.4 GRAM, QD
     Route: 065
  6. MESALAMINE [Concomitant]
     Active Substance: MESALAMINE
     Dosage: UNK
     Route: 054
     Dates: start: 200111
  7. MESALAMINE [Concomitant]
     Active Substance: MESALAMINE
     Dosage: UNK
     Route: 061
  8. MESALAMINE [Concomitant]
     Active Substance: MESALAMINE
     Dosage: UNK
     Route: 054
     Dates: start: 200602, end: 200604

REACTIONS (9)
  - Pleurisy [Recovered/Resolved]
  - Pleuritic pain [Recovered/Resolved]
  - Dyspnoea exertional [Recovered/Resolved]
  - Pyrexia [Recovered/Resolved]
  - Arthralgia [Recovered/Resolved]
  - Pleural effusion [Recovered/Resolved]
  - Cross sensitivity reaction [Recovered/Resolved]
  - Drug ineffective [Unknown]
  - Off label use [Unknown]

NARRATIVE: CASE EVENT DATE: 20200201
